FAERS Safety Report 5598146-8 (Version None)
Quarter: 2008Q1

REPORT INFORMATION
  Report Type: 
  Country: None (occurrence: None)
  Receive Date: 20080117
  Receipt Date: 20080117
  Transmission Date: 20080703
  Serious: Yes (Hospitalization)
  Sender: FDA-Public Use
  Company Number: None

PATIENT
  Sex: Female
  Weight: 90 kg

DRUGS (3)
  1. MYLOTARG [Suspect]
     Dosage: 12 MG
  2. CYTARABINE [Suspect]
     Dosage: 195 MG
  3. DAUNORUBICIN HCL [Suspect]
     Dosage: 117 MG

REACTIONS (2)
  - ACUTE RESPIRATORY DISTRESS SYNDROME [None]
  - WHITE BLOOD CELL COUNT DECREASED [None]
